APPROVED DRUG PRODUCT: FELODIPINE
Active Ingredient: FELODIPINE
Strength: 10MG
Dosage Form/Route: TABLET, EXTENDED RELEASE;ORAL
Application: A200815 | Product #003 | TE Code: AB
Applicant: PH HEALTH LTD
Approved: Oct 28, 2011 | RLD: No | RS: No | Type: RX